FAERS Safety Report 7874758-3 (Version None)
Quarter: 2011Q4

REPORT INFORMATION
  Report Type: 
  Country: None (occurrence: None)
  Receive Date: 20111031
  Receipt Date: 20111017
  Transmission Date: 20120403
  Serious: Yes (Hospitalization)
  Sender: FDA-Public Use
  Company Number: US-ELI_LILLY_AND_COMPANY-US201110005019

PATIENT
  Sex: Female

DRUGS (6)
  1. LOPRESSOR [Concomitant]
     Dosage: 10 MG, UNK
  2. CIPROFLOXACIN [Concomitant]
     Indication: INFECTION
     Dosage: 500 MG, BID
  3. RAMIPRIL [Concomitant]
     Dosage: 10 MG, UNK
  4. HUMULIN 70/30 [Suspect]
     Dosage: UNK
     Dates: start: 20040101, end: 20100101
  5. HUMALOG MIX 75/25 [Suspect]
     Dosage: UNK
     Dates: start: 20100101
  6. ASPIRIN [Concomitant]
     Dosage: 81 MG, UNK

REACTIONS (10)
  - UPPER LIMB FRACTURE [None]
  - HAEMATOMA [None]
  - ANKLE FRACTURE [None]
  - PAIN IN EXTREMITY [None]
  - MOBILITY DECREASED [None]
  - PROCEDURAL COMPLICATION [None]
  - SKIN ULCER [None]
  - ANGIOGRAM [None]
  - FALL [None]
  - IMPAIRED HEALING [None]
